FAERS Safety Report 25986070 (Version 2)
Quarter: 2025Q4

REPORT INFORMATION
  Report Type: Spontaneous
  Country: EU (occurrence: EU)
  Receive Date: 20251101
  Receipt Date: 20251114
  Transmission Date: 20260118
  Serious: Yes (Hospitalization, Other)
  Sender: AUROBINDO
  Company Number: EU-AFSSAPS-GR2025001614

PATIENT
  Age: 29 Year
  Sex: Female
  Weight: 126 kg

DRUGS (4)
  1. FLUOXETINE [Suspect]
     Active Substance: FLUOXETINE HYDROCHLORIDE
     Indication: Product used for unknown indication
     Dosage: 20 DOSAGE FORM (40 MG X 20CP 1 PRISE UNIQUE)
     Route: 048
     Dates: start: 20250529, end: 20250529
  2. FLUOXETINE [Suspect]
     Active Substance: FLUOXETINE HYDROCHLORIDE
     Dosage: 20 DOSAGE FORM (40 MG X 20CP 1 PRISE UNIQUE)
     Route: 048
     Dates: start: 20250929, end: 20250929
  3. LEVOMEPROMAZINE [Suspect]
     Active Substance: LEVOMEPROMAZINE
     Indication: Poisoning deliberate
     Dosage: 20 DOSAGE FORM (25 MG X 20CP 1 PRISE UNIQUE)
     Route: 048
     Dates: start: 20250529, end: 20250529
  4. LEVOMEPROMAZINE [Suspect]
     Active Substance: LEVOMEPROMAZINE
     Dosage: 20 DOSAGE FORM (25 MG X 20 TABLETS, 1 SINGLE DOSE)
     Route: 048
     Dates: start: 20250929, end: 20250929

REACTIONS (3)
  - Poisoning deliberate [Recovered/Resolved]
  - Electrocardiogram QT prolonged [Recovering/Resolving]
  - Somnolence [Recovering/Resolving]

NARRATIVE: CASE EVENT DATE: 20250929
